FAERS Safety Report 22104960 (Version 19)
Quarter: 2025Q2

REPORT INFORMATION
  Report Type: Report from Study
  Country: US (occurrence: US)
  Receive Date: 20230316
  Receipt Date: 20250522
  Transmission Date: 20250716
  Serious: Yes (Other)
  Sender: TAKEDA
  Company Number: US-TAKEDA-2023TUS026760

PATIENT
  Age: 25 Year
  Sex: Male

DRUGS (4)
  1. ADVATE [Suspect]
     Active Substance: ANTIHEMOPHILIC FACTOR, HUMAN RECOMBINANT
     Indication: Haemorrhage
  2. ADVATE [Suspect]
     Active Substance: ANTIHEMOPHILIC FACTOR, HUMAN RECOMBINANT
  3. ADVATE [Suspect]
     Active Substance: ANTIHEMOPHILIC FACTOR, HUMAN RECOMBINANT
  4. HEMLIBRA [Concomitant]
     Active Substance: EMICIZUMAB-KXWH

REACTIONS (22)
  - Epistaxis [Unknown]
  - Haemarthrosis [Not Recovered/Not Resolved]
  - Kidney infection [Unknown]
  - Haemorrhage [Recovering/Resolving]
  - Spontaneous haemorrhage [Recovered/Resolved]
  - Contusion [Unknown]
  - Chest injury [Unknown]
  - COVID-19 [Not Recovered/Not Resolved]
  - Joint swelling [Unknown]
  - Back pain [Unknown]
  - Tonsillar hypertrophy [Unknown]
  - Arthropathy [Unknown]
  - Ligament sprain [Unknown]
  - Fall [Unknown]
  - Pain [Unknown]
  - Injury [Unknown]
  - Product availability issue [Recovered/Resolved]
  - Pain in extremity [Unknown]
  - Gait inability [Unknown]
  - Limb injury [Unknown]
  - Arthralgia [Recovered/Resolved]
  - Abdominal pain upper [Unknown]

NARRATIVE: CASE EVENT DATE: 20200929
